FAERS Safety Report 8277894-5 (Version None)
Quarter: 2012Q2

REPORT INFORMATION
  Report Type: 
  Country: None (occurrence: None)
  Receive Date: 20120412
  Receipt Date: 20120402
  Transmission Date: 20120825
  Serious: Yes (Hospitalization, Other)
  Sender: FDA-Public Use
  Company Number: US-ELI_LILLY_AND_COMPANY-US200909005987

PATIENT
  Sex: Female
  Weight: 68.027 kg

DRUGS (18)
  1. FORTEO [Suspect]
     Dosage: 20 UG, DAILY (1/D)
     Route: 058
     Dates: start: 20110202
  2. POTASSIUM [Concomitant]
  3. ASPIRIN [Concomitant]
  4. CALCIUM CARBONATE [Concomitant]
  5. FERROUS SULFATE TAB [Concomitant]
  6. FISH OIL [Concomitant]
  7. FORTEO [Suspect]
     Dosage: 20 UG, QD
  8. FORTEO [Suspect]
     Dosage: 20 UG, QD
  9. VERAPAMIL [Concomitant]
  10. DIOVAN [Concomitant]
  11. FORTEO [Suspect]
     Dosage: 20 UG, QD
     Route: 058
     Dates: start: 20110504
  12. FORTEO [Suspect]
     Dosage: 20 UG, QD
     Route: 058
     Dates: start: 20110504
  13. VITAMIN D [Concomitant]
  14. MULTI-VITAMIN [Concomitant]
  15. NIACINAMIDE [Concomitant]
  16. FORTEO [Suspect]
     Indication: OSTEOPOROSIS
     Dosage: 20 UG, DAILY (1/D)
     Route: 058
     Dates: start: 20090616
  17. FORTEO [Suspect]
     Dosage: 20 UG, QD
     Route: 058
     Dates: start: 20110301, end: 20110418
  18. COUMADIN [Concomitant]

REACTIONS (6)
  - COLON CANCER [None]
  - INJECTION SITE PRURITUS [None]
  - BLOOD CALCIUM INCREASED [None]
  - INJECTION SITE HAEMORRHAGE [None]
  - APPENDICITIS [None]
  - INJECTION SITE ERYTHEMA [None]
